FAERS Safety Report 5313879-6 (Version None)
Quarter: 2007Q2

REPORT INFORMATION
  Report Type: 
  Country: None (occurrence: None)
  Receive Date: 20070501
  Receipt Date: 20070420
  Transmission Date: 20071010
  Serious: Yes (Other)
  Sender: FDA-Public Use
  Company Number: AUWYE486318APR07

PATIENT
  Sex: Male

DRUGS (4)
  1. EFFEXOR XR [Suspect]
     Indication: ANXIETY
     Route: 048
     Dates: start: 20060701, end: 20070301
  2. EFFEXOR XR [Suspect]
     Dosage: ALTERNATING BETWEEN 75 MG AND 37.5 MG
     Route: 048
     Dates: start: 20070301, end: 20070301
  3. EFFEXOR XR [Suspect]
     Route: 048
     Dates: start: 20070301, end: 20070409
  4. EFFEXOR XR [Suspect]
     Route: 048
     Dates: start: 20070410

REACTIONS (3)
  - DRUG DEPENDENCE [None]
  - DRUG WITHDRAWAL SYNDROME [None]
  - TINNITUS [None]
